FAERS Safety Report 5550845-X (Version None)
Quarter: 2007Q4

REPORT INFORMATION
  Report Type: 
  Country: None (occurrence: None)
  Receive Date: 20071212
  Receipt Date: 20071206
  Transmission Date: 20080405
  Serious: Yes (Hospitalization)
  Sender: FDA-Public Use
  Company Number: AR-GENENTECH-251757

PATIENT
  Age: 63 Year
  Sex: Male

DRUGS (2)
  1. RAPTIVA [Suspect]
     Indication: PSORIASIS
     Dosage: 1 MG/KG, 1/WEEK
     Route: 058
     Dates: start: 20060401
  2. RAPTIVA [Suspect]
     Dosage: 100 MG, 1/WEEK
     Route: 058

REACTIONS (2)
  - PSORIASIS [None]
  - SUBDURAL HAEMATOMA [None]
